FAERS Safety Report 11859264 (Version 1)
Quarter: 2015Q4

REPORT INFORMATION
  Report Type: Spontaneous
  Country: US (occurrence: US)
  Receive Date: 20151221
  Receipt Date: 20151221
  Transmission Date: 20160305
  Serious: Yes (Other)
  Sender: FDA-Public Use
  Company Number: US-TEIKOKU PHARMA USA-TPU2015-00664

PATIENT
  Age: 53 Year
  Sex: Male
  Weight: 88.53 kg

DRUGS (3)
  1. LIDOCAINE PATCH [Suspect]
     Active Substance: LIDOCAINE
     Indication: DIABETIC NEUROPATHY
     Dosage: UP TO THREE PATCHES AS NEEDED FOR UP TO 12 HOURS
     Route: 061
     Dates: start: 2010
  2. GABAPENTIN. [Concomitant]
     Active Substance: GABAPENTIN
     Indication: DIABETIC NEUROPATHY
  3. LIDOCAINE PATCH [Suspect]
     Active Substance: LIDOCAINE
     Indication: CANCER PAIN

REACTIONS (3)
  - Neoplasm malignant [Not Recovered/Not Resolved]
  - Application site irritation [Not Recovered/Not Resolved]
  - Pain [Not Recovered/Not Resolved]

NARRATIVE: CASE EVENT DATE: 2014
